FAERS Safety Report 6545989-X (Version None)
Quarter: 2010Q1

REPORT INFORMATION
  Report Type: 
  Country: None (occurrence: None)
  Receive Date: 20100121
  Receipt Date: 20100121
  Transmission Date: 20100710
  Serious: Yes (Other)
  Sender: FDA-Public Use
  Company Number: None

PATIENT
  Age: 41 Year
  Sex: Female

DRUGS (1)
  1. TUBERSOL [Suspect]
     Dosage: L FOREARM ID
     Route: 023

REACTIONS (4)
  - COUGH [None]
  - DYSPNOEA [None]
  - RASH [None]
  - URTICARIA [None]
